FAERS Safety Report 22079675 (Version 1)
Quarter: 2023Q1

REPORT INFORMATION
  Report Type: Spontaneous
  Country: RO (occurrence: RO)
  Receive Date: 20230309
  Receipt Date: 20230309
  Transmission Date: 20230418
  Serious: Yes (Other)
  Sender: FDA-Public Use
  Company Number: RO-AMGEN-ROUSP2023038950

PATIENT

DRUGS (5)
  1. BEVACIZUMAB [Suspect]
     Active Substance: BEVACIZUMAB
     Indication: Colorectal cancer metastatic
     Dosage: UNK
     Route: 065
  2. OXALIPLATIN [Concomitant]
     Active Substance: OXALIPLATIN
     Indication: Colorectal cancer metastatic
     Dosage: UNK
     Route: 065
  3. IRINOTECAN [Concomitant]
     Active Substance: IRINOTECAN
     Indication: Colorectal cancer metastatic
     Dosage: UNK
     Route: 065
  4. FLUOROURACIL [Concomitant]
     Active Substance: FLUOROURACIL
     Indication: Colorectal cancer metastatic
     Route: 065
  5. CAPECITABINE [Concomitant]
     Active Substance: CAPECITABINE
     Indication: Colorectal cancer metastatic
     Dosage: UNK
     Route: 065

REACTIONS (35)
  - Colorectal cancer metastatic [Unknown]
  - Haematochezia [Unknown]
  - Therapy partial responder [Unknown]
  - Emotional disorder [Unknown]
  - Cognitive disorder [Unknown]
  - General physical health deterioration [Unknown]
  - Pollakiuria [Unknown]
  - Urinary incontinence [Unknown]
  - Dysuria [Unknown]
  - Musculoskeletal pain [Unknown]
  - Abdominal distension [Unknown]
  - Mucous stools [Unknown]
  - Dry mouth [Unknown]
  - Flatulence [Unknown]
  - Anal incontinence [Unknown]
  - Pain of skin [Unknown]
  - Frequent bowel movements [Unknown]
  - Emotional distress [Unknown]
  - Stoma complication [Unknown]
  - Weight abnormal [Unknown]
  - General physical condition abnormal [Unknown]
  - Insomnia [Unknown]
  - Taste disorder [Unknown]
  - Anxiety [Unknown]
  - Alopecia [Unknown]
  - Fatigue [Unknown]
  - Abdominal pain [Unknown]
  - Diarrhoea [Unknown]
  - Constipation [Unknown]
  - Decreased appetite [Unknown]
  - Dyspnoea [Unknown]
  - Pain [Unknown]
  - Vomiting [Unknown]
  - Nausea [Unknown]
  - Proctalgia [Unknown]
